FAERS Safety Report 15536876 (Version 1)
Quarter: 2018Q4

REPORT INFORMATION
  Report Type: Spontaneous
  Country: US (occurrence: US)
  Receive Date: 20181016
  Receipt Date: 20181016
  Transmission Date: 20190205
  Serious: No
  Sender: FDA-Public Use
  Company Number: None

PATIENT
  Age: 20 Year
  Sex: Male
  Weight: 63.5 kg

DRUGS (1)
  1. REMICADE [Suspect]
     Active Substance: INFLIXIMAB
     Indication: COLITIS ULCERATIVE
     Dosage: ?          OTHER FREQUENCY:WEEK 0,2.6, THEN E;?
     Route: 042
     Dates: start: 20180918, end: 20180918

REACTIONS (2)
  - Pruritus generalised [None]
  - Infusion related reaction [None]

NARRATIVE: CASE EVENT DATE: 20180918
